FAERS Safety Report 14108065 (Version 1)
Quarter: 2017Q4

REPORT INFORMATION
  Report Type: Spontaneous
  Country: GB (occurrence: GB)
  Receive Date: 20171019
  Receipt Date: 20171019
  Transmission Date: 20180321
  Serious: Yes (Disabling, Other)
  Sender: FDA-Public Use
  Company Number: GB-TEVA-816088ACC

PATIENT
  Age: 47 Year
  Sex: Female
  Weight: 118.83 kg

DRUGS (10)
  1. GALPHARM HEALTHCARE HAYFEVER AND ALLERGY RELIEF [Concomitant]
  2. DIHYDROCODEINE [Concomitant]
     Active Substance: DIHYDROCODEINE
  3. MAGNESIUM [Concomitant]
     Active Substance: MAGNESIUM
  4. PARACETAMOL [Concomitant]
     Active Substance: ACETAMINOPHEN
  5. CITALOPRAM [Concomitant]
     Active Substance: CITALOPRAM HYDROBROMIDE
  6. PREDNISOLONE. [Suspect]
     Active Substance: PREDNISOLONE
     Indication: RESPIRATORY TRACT INFECTION
     Dosage: VARIABLE. UP TO 40MG
     Dates: start: 1999, end: 201702
  7. FOSTAIR [Concomitant]
     Active Substance: BECLOMETHASONE\FORMOTEROL
  8. MIRENA [Concomitant]
     Active Substance: LEVONORGESTREL
  9. VITAMIN D3 [Concomitant]
     Active Substance: CHOLECALCIFEROL
  10. SALBUTAMOL [Concomitant]
     Active Substance: ALBUTEROL

REACTIONS (11)
  - Fatigue [Not Recovered/Not Resolved]
  - Migraine [Not Recovered/Not Resolved]
  - Arthralgia [Not Recovered/Not Resolved]
  - Musculoskeletal stiffness [Not Recovered/Not Resolved]
  - Back pain [Not Recovered/Not Resolved]
  - Photopsia [Not Recovered/Not Resolved]
  - Vitamin D deficiency [Recovering/Resolving]
  - Aura [Not Recovered/Not Resolved]
  - Myalgia [Not Recovered/Not Resolved]
  - Oedema [Not Recovered/Not Resolved]
  - Insomnia [Not Recovered/Not Resolved]

NARRATIVE: CASE EVENT DATE: 2011
